FAERS Safety Report 8343263-2 (Version None)
Quarter: 2012Q2

REPORT INFORMATION
  Report Type: 
  Country: None (occurrence: None)
  Receive Date: 20120508
  Receipt Date: 20120430
  Transmission Date: 20120825
  Serious: Yes (Hospitalization)
  Sender: FDA-Public Use
  Company Number: US-BAYER-2011-034332

PATIENT
  Age: 38 Year
  Sex: Female

DRUGS (4)
  1. CIPROFLOXACIN [Concomitant]
     Indication: URINARY TRACT INFECTION
     Dosage: UNK
     Dates: start: 20071201
  2. PERCOCET [Concomitant]
  3. YAZ [Suspect]
     Dosage: UNK
     Dates: start: 20071101
  4. LEVAQUIN [Concomitant]

REACTIONS (3)
  - DEEP VEIN THROMBOSIS [None]
  - PAIN [None]
  - INJURY [None]
